FAERS Safety Report 17117081 (Version 1)
Quarter: 2019Q4

REPORT INFORMATION
  Report Type: Spontaneous
  Country: ES (occurrence: ES)
  Receive Date: 20191205
  Receipt Date: 20191205
  Transmission Date: 20200122
  Serious: Yes (Other)
  Sender: FDA-Public Use
  Company Number: ES-ASTRAZENECA-2019SF71284

PATIENT
  Age: 56 Year
  Sex: Female

DRUGS (5)
  1. MOPRHINE (MORPHINE SULFATE) [Concomitant]
     Indication: ANALGESIC THERAPY
  2. PALBOCICLIB (PALBOCICLIB) [Suspect]
     Active Substance: PALBOCICLIB
     Dosage: 125 MG, CYCLIC 3 WEEKS ON, 1 WEEK OFF
     Route: 048
     Dates: start: 20180607
  3. AMITRIPTYLINE (AMITRIPTYLINE) [Concomitant]
     Active Substance: AMITRIPTYLINE
     Indication: ANALGESIC THERAPY
  4. FULVESTRANT. [Suspect]
     Active Substance: FULVESTRANT
     Dosage: 500 MG, UNK (28 DAYS WITH EXTRA DOSE ON DAY 15 OF THE FIRST MONTH)
     Route: 030
     Dates: start: 20180518
  5. ZOLENDRONIC ACID (ZOLENDRONIC ACID) [Concomitant]
     Dates: start: 201811

REACTIONS (7)
  - Mucosal inflammation [Unknown]
  - Nausea [Unknown]
  - Dyspnoea [Unknown]
  - Asthenia [Unknown]
  - Fracture [Unknown]
  - Oesophagitis [Unknown]
  - Decreased appetite [Unknown]
